FAERS Safety Report 22339121 (Version 1)
Quarter: 2023Q2

REPORT INFORMATION
  Report Type: Spontaneous
  Country: US (occurrence: US)
  Receive Date: 20230518
  Receipt Date: 20230518
  Transmission Date: 20230721
  Serious: Yes (Other)
  Sender: FDA-Public Use
  Company Number: US-JNJFOC-20230533856

PATIENT
  Age: 50 Year
  Sex: Female
  Weight: 56.2 kg

DRUGS (3)
  1. OPSUMIT [Suspect]
     Active Substance: MACITENTAN
     Indication: Pulmonary arterial hypertension
     Route: 048
  2. TREPROSTINIL SODIUM [Suspect]
     Active Substance: TREPROSTINIL SODIUM
     Indication: Pulmonary arterial hypertension
     Route: 058
     Dates: start: 20130927
  3. NINTEDANIB ESYLATE [Concomitant]
     Active Substance: NINTEDANIB ESYLATE

REACTIONS (2)
  - Left ventricular hypertrophy [Unknown]
  - Diastolic dysfunction [Unknown]
